FAERS Safety Report 9370969 (Version 1)
Quarter: 2013Q2

REPORT INFORMATION
  Report Type: Report from Study
  Country: FR (occurrence: FR)
  Receive Date: 20130627
  Receipt Date: 20130627
  Transmission Date: 20140414
  Serious: Yes (Death, Hospitalization)
  Sender: FDA-Public Use
  Company Number: FR-ROCHE-699176

PATIENT
  Age: 70 Year
  Sex: Male
  Weight: 74 kg

DRUGS (32)
  1. RITUXIMAB [Suspect]
     Indication: B-CELL LYMPHOMA
     Dosage: TOTAL DOSE ADMINISTERED FOR CYCLE 1: 712 MG
     Route: 042
  2. RITUXIMAB [Suspect]
     Dosage: TOTAL DOSE ADMINISTERED FOR CYCLE 2: 712.5 MG
     Route: 042
  3. RITUXIMAB [Suspect]
     Dosage: CYCLE 1 OF MAINTENANCE TMT, DOSE: 375 MG/M2
     Route: 042
     Dates: start: 20080522, end: 20091202
  4. RITUXIMAB [Suspect]
     Route: 065
  5. RITUXIMAB [Suspect]
     Route: 065
  6. RITUXIMAB [Suspect]
     Route: 065
  7. RITUXIMAB [Suspect]
     Route: 065
  8. RITUXIMAB [Suspect]
     Route: 065
  9. RITUXIMAB [Suspect]
     Route: 065
  10. VINCRISTINE [Suspect]
     Indication: B-CELL LYMPHOMA
     Route: 065
     Dates: start: 20100316
  11. VINCRISTINE [Suspect]
     Route: 065
     Dates: start: 20100406
  12. VINCRISTINE [Suspect]
     Route: 065
     Dates: start: 20100427
  13. VINCRISTINE [Suspect]
     Route: 065
     Dates: start: 20100518
  14. VINCRISTINE [Suspect]
     Route: 065
     Dates: start: 20100608
  15. VINCRISTINE [Suspect]
     Route: 065
     Dates: start: 20100629
  16. CYCLOPHOSPHAMIDE [Suspect]
     Indication: B-CELL LYMPHOMA
     Route: 065
     Dates: start: 20100316
  17. CYCLOPHOSPHAMIDE [Suspect]
     Route: 065
     Dates: start: 20100406
  18. CYCLOPHOSPHAMIDE [Suspect]
     Route: 065
     Dates: start: 20100427
  19. CYCLOPHOSPHAMIDE [Suspect]
     Route: 065
     Dates: start: 20100518
  20. CYCLOPHOSPHAMIDE [Suspect]
     Route: 065
     Dates: start: 20100608
  21. CYCLOPHOSPHAMIDE [Suspect]
     Route: 065
     Dates: start: 20100629
  22. PREDNISOLONE [Suspect]
     Indication: B-CELL LYMPHOMA
     Route: 065
     Dates: start: 20100316
  23. PREDNISOLONE [Suspect]
     Route: 065
     Dates: start: 20100406
  24. PREDNISOLONE [Suspect]
     Route: 065
     Dates: start: 20100427
  25. PREDNISOLONE [Suspect]
     Route: 065
     Dates: start: 20100518
  26. PREDNISOLONE [Suspect]
     Route: 065
     Dates: start: 20100608
  27. PREDNISOLONE [Suspect]
     Route: 065
     Dates: start: 20100629
  28. DOXORUBICINE [Suspect]
     Indication: B-CELL LYMPHOMA
     Route: 065
     Dates: start: 20100518
  29. DOXORUBICINE [Suspect]
     Route: 065
     Dates: start: 20100608
  30. DOXORUBICINE [Suspect]
     Route: 065
     Dates: start: 20100629
  31. BACTRIM [Concomitant]
     Route: 065
  32. ZELITREX [Concomitant]

REACTIONS (2)
  - Pneumothorax [Recovered/Resolved]
  - Death [Fatal]
